FAERS Safety Report 8244651-5 (Version None)
Quarter: 2012Q1

REPORT INFORMATION
  Report Type: 
  Country: None (occurrence: None)
  Receive Date: 20120329
  Receipt Date: 20111205
  Transmission Date: 20120608
  Serious: Yes (Other)
  Sender: FDA-Public Use
  Company Number: US-MYLANLABS-2011S1025057

PATIENT
  Age: 44 Year
  Sex: Female
  Weight: 99.79 kg

DRUGS (4)
  1. FENTANYL-100 [Suspect]
     Dosage: CHANGES Q. 72 HOURS.
     Route: 062
     Dates: start: 20111205
  2. FENTANYL-100 [Suspect]
     Dosage: CHANGES Q. 72 HOURS.
     Route: 062
     Dates: start: 20111205
  3. FENTANYL-100 [Suspect]
     Indication: BACK PAIN
     Dosage: CHANGES Q. 72 HOURS.
     Route: 062
     Dates: start: 20111201, end: 20111202
  4. FENTANYL-100 [Suspect]
     Indication: CHEST PAIN
     Dosage: CHANGES Q. 72 HOURS.
     Route: 062
     Dates: start: 20111201, end: 20111202

REACTIONS (1)
  - NAUSEA [None]
